FAERS Safety Report 9670720 (Version 1)
Quarter: 2013Q4

REPORT INFORMATION
  Report Type: Spontaneous
  Country: BR (occurrence: BR)
  Receive Date: 20131106
  Receipt Date: 20131106
  Transmission Date: 20140711
  Serious: Yes (Other)
  Sender: FDA-Public Use
  Company Number: BR-AMGEN-BRASP2013078091

PATIENT
  Age: 53 Year
  Sex: Female
  Weight: 47 kg

DRUGS (6)
  1. ENBREL [Suspect]
     Indication: PSORIATIC ARTHROPATHY
     Dosage: 50 MG (2 APPLICATIONS OF 25MG), WEEKLY
     Route: 065
     Dates: start: 2007
  2. ENBREL [Suspect]
     Dosage: 50 MG, EVERY 15 DAYS
     Route: 058
     Dates: start: 2008
  3. CYCLOBENZAPRINE [Concomitant]
     Indication: PAIN
     Dosage: AS NEEDED
  4. OMEPRAZOL                          /00661201/ [Concomitant]
     Dosage: 40 MG, 1X/DAY
     Dates: start: 201102
  5. AMITRIPTYLINE [Concomitant]
     Dosage: 25 MG, 1X/DAY
     Dates: start: 200812
  6. PARACETAMOL [Concomitant]
     Indication: PAIN
     Dosage: AS NEEDED

REACTIONS (3)
  - Psoriatic arthropathy [Unknown]
  - Wrong technique in drug usage process [Unknown]
  - Leukopenia [Unknown]
